FAERS Safety Report 5164924-2 (Version None)
Quarter: 2006Q4

REPORT INFORMATION
  Report Type: 
  Country: None (occurrence: None)
  Receive Date: 20061124
  Receipt Date: 20061116
  Transmission Date: 20070319
  Serious: Yes (Hospitalization)
  Sender: FDA-Public Use
  Company Number: 028-20785-06110983

PATIENT
  Age: 68 Year
  Sex: Male

DRUGS (6)
  1. THALOMID [Suspect]
     Indication: MULTIPLE MYELOMA
     Dosage: 100 MG, QHS, ORAL; 150 MG, QHS, ORAL; 100 MG, QHS, ORAL
     Route: 048
     Dates: start: 20041223, end: 20050101
  2. THALOMID [Suspect]
     Indication: MULTIPLE MYELOMA
     Dosage: 100 MG, QHS, ORAL; 150 MG, QHS, ORAL; 100 MG, QHS, ORAL
     Route: 048
     Dates: start: 20050118, end: 20050314
  3. THALOMID [Suspect]
     Indication: MULTIPLE MYELOMA
     Dosage: 100 MG, QHS, ORAL; 150 MG, QHS, ORAL; 100 MG, QHS, ORAL
     Route: 048
     Dates: start: 20050315
  4. DEXAMETHASONE TAB [Suspect]
     Indication: MULTIPLE MYELOMA
     Dates: start: 20041223
  5. EPREX (EPOETIN ALDA) [Concomitant]
  6. AREDIA [Concomitant]

REACTIONS (4)
  - ANAEMIA [None]
  - ANOREXIA [None]
  - FLUID OVERLOAD [None]
  - PARAESTHESIA [None]
